FAERS Safety Report 19507637 (Version 1)
Quarter: 2021Q3

REPORT INFORMATION
  Report Type: Other
  Country: US (occurrence: US)
  Receive Date: 20210708
  Receipt Date: 20210708
  Transmission Date: 20211014
  Serious: Yes (Other)
  Sender: FDA-Public Use
  Company Number: US-ROCHE-2852339

PATIENT
  Sex: Female

DRUGS (1)
  1. OCREVUS [Suspect]
     Active Substance: OCRELIZUMAB
     Indication: MULTIPLE SCLEROSIS
     Dosage: DATE OF TREATMENT; 15/FEB/2019, 02/MAR/2019, 18/SEP/2019, 21/MAR/2020, 01/OCT/2020 AND 01/APR/2021
     Route: 042

REACTIONS (1)
  - Renal cancer [Unknown]
